FAERS Safety Report 5397082-X (Version None)
Quarter: 2007Q3

REPORT INFORMATION
  Report Type: 
  Country: None (occurrence: None)
  Receive Date: 20070725
  Receipt Date: 20070723
  Transmission Date: 20080115
  Serious: Yes (Death, Other)
  Sender: FDA-Public Use
  Company Number: FR-MERCK-0707FRA00035

PATIENT
  Age: 36 Year
  Sex: Female

DRUGS (9)
  1. EMEND [Suspect]
     Indication: PROPHYLAXIS OF NAUSEA AND VOMITING
     Route: 048
     Dates: start: 20070116, end: 20070116
  2. EMEND [Suspect]
     Route: 048
     Dates: start: 20070117, end: 20070118
  3. EMEND [Suspect]
     Route: 048
     Dates: start: 20070207, end: 20070207
  4. EMEND [Suspect]
     Route: 048
     Dates: start: 20070208, end: 20070209
  5. EMEND [Suspect]
     Route: 048
     Dates: start: 20061116, end: 20061116
  6. EMEND [Suspect]
     Route: 048
     Dates: start: 20061117, end: 20061118
  7. PEGFILGRASTIM [Suspect]
     Indication: PROPHYLAXIS
     Route: 058
     Dates: start: 20061029, end: 20070209
  8. DOXORUBICIN HYDROCHLORIDE [Suspect]
     Indication: LIPOSARCOMA
     Route: 042
     Dates: start: 20061025, end: 20070205
  9. IFOSFAMIDE [Suspect]
     Indication: LIPOSARCOMA
     Route: 042
     Dates: start: 20061025, end: 20070205

REACTIONS (3)
  - DRUG INEFFECTIVE [None]
  - DRUG INTERACTION [None]
  - SUDDEN DEATH [None]
